FAERS Safety Report 25819473 (Version 1)
Quarter: 2025Q3

REPORT INFORMATION
  Report Type: Spontaneous
  Country: US (occurrence: US)
  Receive Date: 20250918
  Receipt Date: 20250918
  Transmission Date: 20251021
  Serious: No
  Sender: SANOFI AVENTIS
  Company Number: US-SA-2025SA278350

PATIENT
  Age: 6 Year
  Sex: Female

DRUGS (2)
  1. DUPIXENT [Suspect]
     Active Substance: DUPILUMAB
     Indication: Eczema
     Route: 058
     Dates: start: 20250809, end: 20250809
  2. DUPIXENT [Suspect]
     Active Substance: DUPILUMAB
     Dosage: 200 MG, QOW
     Route: 058
     Dates: start: 20250823, end: 20250907

REACTIONS (7)
  - Erythema infectiosum [Unknown]
  - Swelling face [Unknown]
  - Rash [Recovered/Resolved]
  - Rebound eczema [Unknown]
  - Pustule [Unknown]
  - Pruritus [Unknown]
  - Skin swelling [Unknown]

NARRATIVE: CASE EVENT DATE: 20250901
